FAERS Safety Report 4600371-7 (Version None)
Quarter: 2005Q1

REPORT INFORMATION
  Report Type: 
  Country: None (occurrence: None)
  Receive Date: 20050127
  Receipt Date: 20041108
  Transmission Date: 20050727
  Serious: No
  Sender: FDA-Public Use
  Company Number: USA041183443

PATIENT
  Age: 48 Year
  Sex: Male
  Weight: 87 kg

DRUGS (3)
  1. STRATTERA [Suspect]
     Indication: ATTENTION DEFICIT/HYPERACTIVITY DISORDER
     Dosage: 40 MG
     Dates: start: 20040901, end: 20041001
  2. FLUOXETINE [Concomitant]
  3. MULTI-VITAMIN [Concomitant]

REACTIONS (4)
  - DYSURIA [None]
  - PAIN [None]
  - PRIAPISM [None]
  - URINARY RETENTION [None]
